FAERS Safety Report 17807953 (Version 2)
Quarter: 2021Q2

REPORT INFORMATION
  Report Type: Spontaneous
  Country: US (occurrence: US)
  Receive Date: 20200520
  Receipt Date: 20210628
  Transmission Date: 20210716
  Serious: No
  Sender: FDA-Public Use
  Company Number: US-HORIZON-DUE-VIM-0155-2020

PATIENT
  Sex: Male

DRUGS (2)
  1. VIMOVO [Suspect]
     Active Substance: ESOMEPRAZOLE MAGNESIUM\NAPROXEN
     Indication: INFLAMMATION
     Dosage: 1 DOSAGE FORM, UNK
     Dates: start: 201906
  2. DUEXIS [Suspect]
     Active Substance: FAMOTIDINE\IBUPROFEN
     Indication: PAIN

REACTIONS (4)
  - Off label use [Recovered/Resolved]
  - Arthralgia [Unknown]
  - Inflammation [Unknown]
  - Intentional product use issue [Not Recovered/Not Resolved]
